FAERS Safety Report 25068076 (Version 1)
Quarter: 2025Q1

REPORT INFORMATION
  Report Type: Spontaneous
  Country: GB (occurrence: GB)
  Receive Date: 20250312
  Receipt Date: 20250312
  Transmission Date: 20250408
  Serious: Yes (Other)
  Sender: ACCORD
  Company Number: None

PATIENT
  Age: 9 Year
  Sex: Male

DRUGS (3)
  1. MONTELUKAST [Suspect]
     Active Substance: MONTELUKAST
     Indication: Asthma
     Dates: start: 20250109, end: 20250228
  2. ALBUTEROL [Concomitant]
     Active Substance: ALBUTEROL
     Indication: Asthma
     Dates: start: 20250109
  3. BECLOMETHASONE DIPROPIONATE [Concomitant]
     Active Substance: BECLOMETHASONE DIPROPIONATE
     Indication: Asthma
     Dates: start: 20250206

REACTIONS (11)
  - Nightmare [Recovering/Resolving]
  - Mood altered [Recovering/Resolving]
  - Morbid thoughts [Recovering/Resolving]
  - Negative thoughts [Recovering/Resolving]
  - Facial pain [Recovering/Resolving]
  - Palpitations [Recovering/Resolving]
  - Poor quality sleep [Recovering/Resolving]
  - Sleep talking [Recovering/Resolving]
  - Somnambulism [Recovering/Resolving]
  - Sleep terror [Recovering/Resolving]
  - Hallucination [Recovering/Resolving]
